FAERS Safety Report 9813130 (Version 1)
Quarter: 2014Q1

REPORT INFORMATION
  Report Type: Spontaneous
  Country: US (occurrence: US)
  Receive Date: 20140113
  Receipt Date: 20140113
  Transmission Date: 20141002
  Serious: Yes (Death)
  Sender: FDA-Public Use
  Company Number: US-INCYTE CORPORATION-2014IN000036

PATIENT
  Age: 83 Year
  Sex: Male

DRUGS (7)
  1. JAKAFI [Suspect]
     Dosage: 5 MG, BID
     Route: 048
     Dates: start: 20131205, end: 20131225
  2. LISINOPRIL [Concomitant]
  3. SYNTHROID [Concomitant]
  4. ASPIRIN [Concomitant]
  5. FISH OIL [Concomitant]
  6. MULTIVITAMIN                       /00097801/ [Concomitant]
  7. AMARYL [Concomitant]

REACTIONS (1)
  - Death [Fatal]
